FAERS Safety Report 5421837-6 (Version None)
Quarter: 2007Q3

REPORT INFORMATION
  Report Type: 
  Country: None (occurrence: None)
  Receive Date: 20070820
  Receipt Date: 20070815
  Transmission Date: 20080115
  Serious: Yes (Other)
  Sender: FDA-Public Use
  Company Number: 013506

PATIENT
  Age: 44 Year
  Sex: Female
  Weight: 44.4 kg

DRUGS (4)
  1. NORDETTE-28 [Suspect]
     Indication: ORAL CONTRACEPTION
     Dosage: 1 TABLET, QD, ORAL; 900 MG, ORAL; 300 MG, ORAL
     Route: 048
     Dates: start: 19970101
  2. TRILEPTAL [Suspect]
     Indication: CONVULSION
     Dosage: ORAL
     Route: 048
     Dates: start: 20061101
  3. LYRICA [Concomitant]
  4. ELAVIL [Concomitant]

REACTIONS (5)
  - BLOOD OESTROGEN DECREASED [None]
  - DRUG INTERACTION [None]
  - MENSTRUATION IRREGULAR [None]
  - OLIGOMENORRHOEA [None]
  - TRIGEMINAL NEURALGIA [None]
